FAERS Safety Report 9657937 (Version 2)
Quarter: 2013Q4

REPORT INFORMATION
  Report Type: Spontaneous
  Country: US (occurrence: US)
  Receive Date: 20131030
  Receipt Date: 20131219
  Transmission Date: 20140711
  Serious: Yes (Death, Other)
  Sender: FDA-Public Use
  Company Number: US-GILEAD-2013-0086523

PATIENT
  Age: 48 Year
  Sex: Female

DRUGS (6)
  1. LETAIRIS [Suspect]
     Indication: PULMONARY HYPERTENSION
     Dosage: 5 MG, QD
     Route: 048
     Dates: start: 20111116
  2. LETAIRIS [Suspect]
     Indication: CHRONIC RESPIRATORY FAILURE
  3. LETAIRIS [Suspect]
     Indication: OBESITY
  4. LETAIRIS [Suspect]
     Indication: HYPOVENTILATION
  5. LETAIRIS [Suspect]
     Indication: ASTHMA
  6. ADCIRCA [Concomitant]

REACTIONS (1)
  - Death [Fatal]
